FAERS Safety Report 7963110-8 (Version None)
Quarter: 2011Q4

REPORT INFORMATION
  Report Type: 
  Country: None (occurrence: None)
  Receive Date: 20111207
  Receipt Date: 20111201
  Transmission Date: 20120403
  Serious: Yes (Other)
  Sender: FDA-Public Use
  Company Number: GB-ROCHE-1017963

PATIENT
  Sex: Male

DRUGS (4)
  1. EPIRUBICIN HYDROCHLORIDE [Suspect]
     Indication: GASTROOESOPHAGEAL CANCER
     Dosage: LAST DOSE 08/SEP/2010
     Route: 042
     Dates: start: 20100716
  2. XELODA [Suspect]
     Indication: GASTROOESOPHAGEAL CANCER
     Dosage: LAST DOSE 19/SEO/2010
     Route: 048
     Dates: start: 20100716
  3. CISPLATIN [Suspect]
     Indication: GASTROOESOPHAGEAL CANCER
     Dosage: LAST DOSE 08/SEP/2010
     Route: 042
     Dates: start: 20100716
  4. AVASTIN [Suspect]
     Indication: GASTROOESOPHAGEAL CANCER
     Dosage: MOST RECENT ADMINITRATION 08/SEP/2010
     Route: 042
     Dates: start: 20100716

REACTIONS (1)
  - IMPAIRED HEALING [None]
